FAERS Safety Report 24318526 (Version 1)
Quarter: 2024Q3

REPORT INFORMATION
  Report Type: Spontaneous
  Country: US (occurrence: None)
  Receive Date: 20240913
  Receipt Date: 20240913
  Transmission Date: 20241016
  Serious: No
  Sender: Public
  Company Number: None

PATIENT
  Sex: 0

DRUGS (1)
  1. MICONAZOLE 3 [Suspect]
     Active Substance: MICONAZOLE NITRATE
     Indication: Fungal infection
     Route: 067
     Dates: start: 20240911

REACTIONS (3)
  - Vulvovaginal pain [None]
  - Vulvovaginal burning sensation [None]
  - Vulvovaginal swelling [None]

NARRATIVE: CASE EVENT DATE: 20240912
